FAERS Safety Report 24308117 (Version 1)
Quarter: 2024Q3

REPORT INFORMATION
  Report Type: Other
  Country: US (occurrence: US)
  Receive Date: 20240911
  Receipt Date: 20240911
  Transmission Date: 20241017
  Serious: Yes (Hospitalization)
  Sender: SIGMA TAU
  Company Number: US-LEADIANT GMBH-2023STPI000472

PATIENT
  Age: 38 Year
  Sex: Female

DRUGS (2)
  1. MATULANE [Suspect]
     Active Substance: PROCARBAZINE HYDROCHLORIDE
     Indication: Brain neoplasm malignant
     Dosage: 50 MILLIGRAMS, 2 CAPSULES (100MG TOTAL) ONCE DAILY ON DAYS 8 TO 21 OF 42 DAY CYCLE
     Route: 048
     Dates: start: 20230711
  2. LEVETIRACETAM [Concomitant]
     Active Substance: LEVETIRACETAM
     Indication: Seizure

REACTIONS (1)
  - Seizure [Recovering/Resolving]

NARRATIVE: CASE EVENT DATE: 20231225
